FAERS Safety Report 23461046 (Version 3)
Quarter: 2024Q1

REPORT INFORMATION
  Report Type: Spontaneous
  Country: CA (occurrence: CA)
  Receive Date: 20240131
  Receipt Date: 20240307
  Transmission Date: 20240409
  Serious: Yes (Other)
  Sender: FDA-Public Use
  Company Number: CA-PFIZER INC-202300060835

PATIENT
  Age: 11 Year
  Sex: Female
  Weight: 31.5 kg

DRUGS (3)
  1. SOMATROPIN [Suspect]
     Active Substance: SOMATROPIN
     Indication: Short stature
     Dosage: 6 DAYS/WEEK
     Route: 058
     Dates: start: 20230225, end: 2023
  2. SOMATROPIN [Suspect]
     Active Substance: SOMATROPIN
     Dosage: 6 DAYS PER WEEK
     Route: 058
     Dates: start: 2023, end: 2023
  3. SOMATROPIN [Suspect]
     Active Substance: SOMATROPIN
     Dosage: 1.5MG DAILY, 6 DAYS PER WEEK
     Route: 058
     Dates: start: 2023

REACTIONS (3)
  - Spinal disorder [Unknown]
  - Product prescribing error [Unknown]
  - Incorrect dose administered [Unknown]
